FAERS Safety Report 4632912-8 (Version None)
Quarter: 2005Q2

REPORT INFORMATION
  Report Type: 
  Country: None (occurrence: None)
  Receive Date: 20050412
  Receipt Date: 20050331
  Transmission Date: 20051028
  Serious: Yes (Other)
  Sender: FDA-Public Use
  Company Number: JP-JNJFOC-20040504990

PATIENT
  Sex: Female

DRUGS (38)
  1. RISPERIDONE [Suspect]
     Route: 049
  2. RISPERIDONE [Suspect]
     Route: 049
  3. RISPERIDONE [Suspect]
     Route: 049
  4. RISPERIDONE [Suspect]
     Route: 049
  5. RISPERIDONE [Suspect]
     Route: 049
  6. RISPERIDONE [Suspect]
     Route: 049
  7. RISPERIDONE [Suspect]
     Indication: SCHIZOPHRENIA
     Route: 049
  8. RISPERIDONE [Suspect]
     Route: 049
  9. RISPERIDONE [Suspect]
     Route: 049
  10. RISPERIDONE [Suspect]
     Route: 049
  11. RISPERIDONE [Suspect]
     Route: 049
  12. RISPERIDONE [Suspect]
     Route: 049
  13. RISPERIDONE [Suspect]
     Route: 049
  14. RISPERIDONE [Suspect]
     Route: 049
  15. RISPERIDONE [Suspect]
     Route: 049
  16. RISPERIDONE [Suspect]
     Route: 049
  17. RISPERIDONE [Suspect]
     Route: 049
  18. RISPERIDONE [Suspect]
     Route: 049
  19. BROMPERIDOL [Concomitant]
     Route: 065
  20. BROMPERIDOL [Concomitant]
     Route: 065
  21. BIPERIDEN HYDROCHLORIDE TAB [Concomitant]
     Route: 065
  22. BIPERIDEN HYDROCHLORIDE TAB [Concomitant]
     Route: 065
  23. HALOPERIDOL [Concomitant]
     Route: 042
  24. HALOPERIDOL [Concomitant]
     Route: 065
  25. HALOPERIDOL [Concomitant]
     Route: 065
  26. HALOPERIDOL [Concomitant]
     Route: 065
  27. HALOPERIDOL [Concomitant]
     Route: 065
  28. HALOPERIDOL [Concomitant]
     Route: 065
  29. HALOPERIDOL [Concomitant]
     Route: 065
  30. HALOPERIDOL [Concomitant]
     Route: 065
  31. HALOPERIDOL [Concomitant]
     Route: 065
  32. HALOPERIDOL [Concomitant]
     Route: 065
  33. HALOPERIDOL [Concomitant]
     Route: 030
  34. HALOPERIDOL [Concomitant]
     Route: 030
  35. HALOPERIDOL [Concomitant]
     Route: 030
  36. DIAZEPAM [Concomitant]
     Route: 042
  37. CHLORPROMAZINE [Concomitant]
     Route: 065
  38. PROMETHAZINE [Concomitant]
     Route: 065

REACTIONS (3)
  - CAESAREAN SECTION [None]
  - DRUG EXPOSURE DURING PREGNANCY [None]
  - DRUG EXPOSURE VIA BREAST MILK [None]
